FAERS Safety Report 15583971 (Version 1)
Quarter: 2018Q4

REPORT INFORMATION
  Report Type: Spontaneous
  Country: US (occurrence: US)
  Receive Date: 20181031
  Receipt Date: 20181031
  Transmission Date: 20190205
  Serious: No
  Sender: FDA-Public Use
  Company Number: None

PATIENT
  Age: 57 Year
  Sex: Female
  Weight: 108.86 kg

DRUGS (2)
  1. TALTZ [Suspect]
     Active Substance: IXEKIZUMAB
     Indication: PSORIASIS
     Dosage: INJECT 80MG (1 PEN) SUBCUTANEOUSLY EVERY 4 WEEKS AS DIRECTED ?
     Route: 058
     Dates: start: 201707
  2. TALTZ [Suspect]
     Active Substance: IXEKIZUMAB
     Indication: PSORIASIS

REACTIONS (2)
  - Abscess [None]
  - Intentional dose omission [None]
